FAERS Safety Report 7183569-6 (Version None)
Quarter: 2010Q4

REPORT INFORMATION
  Report Type: 
  Country: None (occurrence: None)
  Receive Date: 20101220
  Receipt Date: 20101220
  Transmission Date: 20110411
  Serious: Yes (Hospitalization)
  Sender: FDA-Public Use
  Company Number: None

PATIENT
  Age: 47 Year
  Sex: Male

DRUGS (7)
  1. PIOGLITAZONE [Suspect]
     Dosage: ONE DAILY BY MOUTH
     Route: 048
  2. PRILOSEC [Concomitant]
  3. CREON [Concomitant]
  4. LORTAB [Concomitant]
  5. RESTORIL [Concomitant]
  6. LYRICA [Concomitant]
  7. GLIPIZIDE [Concomitant]

REACTIONS (5)
  - ABDOMINAL PAIN [None]
  - DECREASED APPETITE [None]
  - DIARRHOEA [None]
  - NAUSEA [None]
  - VOMITING [None]
